FAERS Safety Report 6418614-6 (Version None)
Quarter: 2009Q4

REPORT INFORMATION
  Report Type: 
  Country: None (occurrence: None)
  Receive Date: 20091021
  Receipt Date: 20090727
  Transmission Date: 20100525
  Serious: No
  Sender: FDA-Public Use
  Company Number: ALL1-2009-02058

PATIENT
  Age: 10 Year
  Sex: Female
  Weight: 56.7 kg

DRUGS (2)
  1. VYVANSE [Suspect]
     Indication: ATTENTION DEFICIT/HYPERACTIVITY DISORDER
     Dosage: 30 MG, 1X/DAY:QD, ORAL
     Route: 048
     Dates: start: 20090715
  2. PAXIL [Concomitant]

REACTIONS (6)
  - ABNORMAL LOSS OF WEIGHT [None]
  - COORDINATION ABNORMAL [None]
  - DISTURBANCE IN SOCIAL BEHAVIOUR [None]
  - FEELING JITTERY [None]
  - INAPPROPRIATE AFFECT [None]
  - INSOMNIA [None]
